FAERS Safety Report 15811070 (Version 1)
Quarter: 2019Q1

REPORT INFORMATION
  Report Type: Spontaneous
  Country: DE (occurrence: DE)
  Receive Date: 20190111
  Receipt Date: 20190111
  Transmission Date: 20190417
  Serious: Yes (Other)
  Sender: FDA-Public Use
  Company Number: DE-AUROBINDO-AUR-APL-2018-064090

PATIENT
  Age: 73 Year
  Sex: Male

DRUGS (1)
  1. MEROPENEM POWDER FOR SOLUTION FOR INFUSION [Suspect]
     Active Substance: MEROPENEM
     Indication: PRODUCT USED FOR UNKNOWN INDICATION
     Dosage: UNK
     Route: 065

REACTIONS (3)
  - Anaphylactic reaction [Unknown]
  - Cardiac arrest [Unknown]
  - Brain injury [Unknown]

NARRATIVE: CASE EVENT DATE: 20171205
